FAERS Safety Report 20003610 (Version 1)
Quarter: 2021Q4

REPORT INFORMATION
  Report Type: Report from Study
  Country: None (occurrence: CN)
  Receive Date: 20211027
  Receipt Date: 20211027
  Transmission Date: 20220303
  Serious: Yes (Other)
  Sender: FDA-Public Use
  Company Number: CN-JNJFOC-20211042739

PATIENT
  Age: 39 Year
  Sex: Female

DRUGS (2)
  1. IBRUTINIB [Suspect]
     Active Substance: IBRUTINIB
     Indication: Waldenstrom^s macroglobulinaemia
     Route: 048
  2. THALIDOMIDE [Concomitant]
     Active Substance: THALIDOMIDE
     Indication: Waldenstrom^s macroglobulinaemia

REACTIONS (1)
  - Waldenstrom^s macroglobulinaemia [Unknown]
